FAERS Safety Report 6317359-0 (Version None)
Quarter: 2009Q3

REPORT INFORMATION
  Report Type: 
  Country: None (occurrence: None)
  Receive Date: 20090821
  Receipt Date: 20090810
  Transmission Date: 20100115
  Serious: Yes (Hospitalization)
  Sender: FDA-Public Use
  Company Number: US-BIOGENIDEC-2009BI025553

PATIENT
  Age: 42 Year
  Sex: Female

DRUGS (1)
  1. AVONEX [Suspect]
     Indication: MULTIPLE SCLEROSIS
     Route: 030
     Dates: start: 20090507

REACTIONS (7)
  - ABASIA [None]
  - ASTHENIA [None]
  - BACTERIAL INFECTION [None]
  - FALL [None]
  - MOBILITY DECREASED [None]
  - MUSCLE SPASMS [None]
  - URINARY TRACT INFECTION [None]
